FAERS Safety Report 4646809-0 (Version None)
Quarter: 2005Q2

REPORT INFORMATION
  Report Type: 
  Country: None (occurrence: None)
  Receive Date: 20050331
  Receipt Date: 20041203
  Transmission Date: 20051028
  Serious: No
  Sender: FDA-Public Use
  Company Number: 04P-163-0282148-00

PATIENT
  Age: 74 Year
  Sex: Female
  Weight: 49.8957 kg

DRUGS (5)
  1. HUMIRA [Suspect]
     Indication: RHEUMATOID ARTHRITIS
     Dosage: 40 MG, 1 IN 2 WK, SUBCUTANEOUS
     Route: 058
     Dates: start: 20041001, end: 20041018
  2. METHOTREXATE SODIUM [Concomitant]
  3. CALCIUM GLUCONATE [Concomitant]
  4. FOLIC ACID [Concomitant]
  5. FOLIC ACID [Concomitant]

REACTIONS (5)
  - FEELING ABNORMAL [None]
  - HEADACHE [None]
  - MALAISE [None]
  - NAUSEA [None]
  - STOMACH DISCOMFORT [None]
